FAERS Safety Report 7308503-7 (Version None)
Quarter: 2011Q1

REPORT INFORMATION
  Report Type: 
  Country: None (occurrence: None)
  Receive Date: 20110223
  Receipt Date: 20101223
  Transmission Date: 20110831
  Serious: Yes (Hospitalization)
  Sender: FDA-Public Use
  Company Number: US-BAYER-201025117NA

PATIENT
  Sex: Female

DRUGS (13)
  1. IBUPROFEN [Concomitant]
     Dosage: UNK
  2. SUMATRIPTAN [Concomitant]
     Dosage: UNK
     Dates: start: 20090101
  3. AMOXICILLIN [Concomitant]
     Dosage: UNK
     Dates: start: 20090101
  4. YASMIN [Suspect]
     Indication: PRODUCT USED FOR UNKNOWN INDICATION
     Dosage: UNK
  5. CEFUROXIME [Concomitant]
     Dosage: UNK
     Dates: start: 20080101
  6. HYDROCODONE BITARTRATE AND ACETAMINOPHEN [Concomitant]
     Dosage: UNK
     Dates: start: 20080101
  7. FLUOXETINE [Concomitant]
     Dosage: UNK
     Dates: start: 20090101
  8. OFLOXACIN [Concomitant]
     Dosage: UNK
     Dates: start: 20090101
  9. FLUCONAZOLE [Concomitant]
     Dosage: UNK
     Dates: start: 20080101
  10. MAXALT [Concomitant]
     Dosage: UNK
     Dates: start: 20080101
  11. YAZ [Suspect]
     Indication: PRODUCT USED FOR UNKNOWN INDICATION
     Dosage: UNK
     Dates: start: 20080915
  12. OCELLA [Suspect]
     Indication: PRODUCT USED FOR UNKNOWN INDICATION
  13. VERAPAMIL [Concomitant]
     Dosage: UNK
     Dates: start: 20090101

REACTIONS (9)
  - CHOLECYSTITIS CHRONIC [None]
  - GALLBLADDER CHOLESTEROLOSIS [None]
  - FAT INTOLERANCE [None]
  - ABDOMINAL PAIN UPPER [None]
  - NAUSEA [None]
  - ABDOMINAL TENDERNESS [None]
  - ABDOMINAL DISCOMFORT [None]
  - BILIARY COLIC [None]
  - CHOLELITHIASIS [None]
